FAERS Safety Report 10232489 (Version 1)
Quarter: 2014Q2

REPORT INFORMATION
  Report Type: Spontaneous
  Country: US (occurrence: None)
  Receive Date: 20140506
  Receipt Date: 20140506
  Transmission Date: 20141212
  Serious: Yes (Other)
  Sender: FDA-Public Use
  Company Number: 1220844

PATIENT
  Sex: Male

DRUGS (2)
  1. AVASTIN (BEVACIZUMAB) [Suspect]
     Indication: COLORECTAL CANCER METASTATIC
  2. XELODA (CAPECITABINE) [Concomitant]

REACTIONS (3)
  - Neuropathy peripheral [None]
  - Metastases to lung [None]
  - Metastases to liver [None]
